FAERS Safety Report 18064334 (Version 2)
Quarter: 2021Q3

REPORT INFORMATION
  Report Type: Spontaneous
  Country: US (occurrence: US)
  Receive Date: 20200724
  Receipt Date: 20210827
  Transmission Date: 20211014
  Serious: Yes (Death, Other)
  Sender: FDA-Public Use
  Company Number: US-GLAXOSMITHKLINE-US2020138996

PATIENT
  Sex: Female

DRUGS (3)
  1. ZANTAC [Suspect]
     Active Substance: RANITIDINE HYDROCHLORIDE
     Dosage: UNK
     Route: 065
     Dates: start: 20120715
  2. ZANTAC [Suspect]
     Active Substance: RANITIDINE HYDROCHLORIDE
     Indication: BLOOD CHOLESTEROL INCREASED
     Dosage: 75 MG, QD
     Route: 065
     Dates: start: 201205, end: 201401
  3. ZANTAC [Suspect]
     Active Substance: RANITIDINE HYDROCHLORIDE
     Indication: BLOOD CHOLESTEROL INCREASED
     Dosage: 75 MG, QD
     Route: 065
     Dates: start: 201205, end: 201401

REACTIONS (1)
  - Oesophageal carcinoma [Fatal]
